FAERS Safety Report 24879493 (Version 2)
Quarter: 2025Q2

REPORT INFORMATION
  Report Type: Spontaneous
  Country: US (occurrence: US)
  Receive Date: 20250123
  Receipt Date: 20250510
  Transmission Date: 20250716
  Serious: No
  Sender: SANOFI AVENTIS
  Company Number: US-SA-2025SA018301

PATIENT
  Sex: Male

DRUGS (1)
  1. DUPIXENT [Suspect]
     Active Substance: DUPILUMAB
     Indication: Eczema
     Dosage: 300 MG, QOW
     Route: 058
     Dates: start: 202411

REACTIONS (5)
  - Snoring [Recovering/Resolving]
  - Pruritus [Unknown]
  - Therapeutic response shortened [Unknown]
  - Eczema [Unknown]
  - Product dose omission in error [Unknown]
